FAERS Safety Report 12033612 (Version 2)
Quarter: 2018Q2

REPORT INFORMATION
  Report Type: Report from Study
  Country: None (occurrence: US)
  Receive Date: 20160207
  Receipt Date: 20180420
  Transmission Date: 20180711
  Serious: Yes (Hospitalization, Other)
  Sender: FDA-Public Use
  Company Number: US-ABBVIE-15K-163-1517471-00

PATIENT
  Age: 53 Year
  Sex: Male
  Weight: 97.61 kg

DRUGS (6)
  1. HUMIRA [Suspect]
     Active Substance: ADALIMUMAB
     Indication: PSORIASIS
     Route: 058
     Dates: start: 2015, end: 201510
  2. ATORVASTATIN [Concomitant]
     Active Substance: ATORVASTATIN
     Indication: HYPERCHOLESTEROLAEMIA
  3. LOSARTAN. [Concomitant]
     Active Substance: LOSARTAN
     Indication: HYPERTENSION
  4. HUMIRA [Suspect]
     Active Substance: ADALIMUMAB
     Route: 058
     Dates: start: 20180408, end: 20180408
  5. ASPIRIN. [Concomitant]
     Active Substance: ASPIRIN
     Indication: PROPHYLAXIS
  6. LABETALOL [Concomitant]
     Active Substance: LABETALOL\LABETALOL HYDROCHLORIDE
     Indication: HYPERTENSION

REACTIONS (21)
  - Skin operation [Recovered/Resolved]
  - Amnesia [Recovering/Resolving]
  - Ageusia [Unknown]
  - Head injury [Recovering/Resolving]
  - Speech disorder [Not Recovered/Not Resolved]
  - Increased appetite [Not Recovered/Not Resolved]
  - Fall [Recovered/Resolved]
  - Speech disorder [Recovered/Resolved]
  - Weight decreased [Recovered/Resolved]
  - Head injury [Recovered/Resolved]
  - Product packaging quantity issue [Unknown]
  - Subdural haematoma [Recovered/Resolved]
  - Neuropathy peripheral [Not Recovered/Not Resolved]
  - Depression [Recovering/Resolving]
  - Hemiplegia [Recovered/Resolved]
  - Memory impairment [Recovering/Resolving]
  - Fall [Recovered/Resolved]
  - Psoriasis [Not Recovered/Not Resolved]
  - Device issue [Unknown]
  - Loss of consciousness [Unknown]
  - Anosmia [Unknown]

NARRATIVE: CASE EVENT DATE: 2015
